FAERS Safety Report 6269812-6 (Version None)
Quarter: 2009Q3

REPORT INFORMATION
  Report Type: 
  Country: None (occurrence: None)
  Receive Date: 20090714
  Receipt Date: 20090708
  Transmission Date: 20100115
  Serious: Yes (Other)
  Sender: FDA-Public Use
  Company Number: 2009SP015049

PATIENT
  Sex: Male

DRUGS (1)
  1. CLARITIN [Suspect]
     Indication: DRUG USE FOR UNKNOWN INDICATION
     Dosage: 20 MG; PO
     Route: 048
     Dates: start: 20090707, end: 20090707

REACTIONS (4)
  - ASTHENIA [None]
  - CHEST PAIN [None]
  - DIZZINESS [None]
  - NAUSEA [None]
